FAERS Safety Report 5477251-0 (Version None)
Quarter: 2007Q4

REPORT INFORMATION
  Report Type: 
  Country: None (occurrence: None)
  Receive Date: 20071004
  Receipt Date: 20070924
  Transmission Date: 20080405
  Serious: Yes (Death, Hospitalization, Other)
  Sender: FDA-Public Use
  Company Number: US-ELI_LILLY_AND_COMPANY-US200709005150

PATIENT
  Age: 70 Year
  Sex: Female

DRUGS (1)
  1. FORTEO [Suspect]
     Dates: start: 20020101

REACTIONS (5)
  - BREAST CANCER METASTATIC [None]
  - COLLAPSE OF LUNG [None]
  - DEATH [None]
  - FEELING ABNORMAL [None]
  - MALAISE [None]
